FAERS Safety Report 8803082 (Version 2)
Quarter: 2012Q4

REPORT INFORMATION
  Report Type: 
  Country: BR (occurrence: BR)
  Receive Date: 20120924
  Receipt Date: 20121126
  Transmission Date: 20130627
  Serious: Yes (Other)
  Sender: FDA-Public Use
  Company Number: BR-NOVOPROD-360016

PATIENT
  Age: 55 Year
  Sex: Female
  Weight: 60 kg

DRUGS (8)
  1. LEVEMIR FLEXPEN [Suspect]
     Indication: TYPE 2 DIABETES MELLITUS
     Dosage: 40 U in morning and 36 U at night
     Route: 058
     Dates: start: 2008
  2. LEVEMIR FLEXPEN [Suspect]
     Dosage: UNK
  3. AVASTIN /00848101/ [Concomitant]
  4. LUCENTIS [Concomitant]
  5. JANUMET                            /06535301/ [Concomitant]
     Indication: TYPE 2 DIABETES MELLITUS
     Dosage: 2 Tab, qd
  6. BETASERC                           /00141801/ [Concomitant]
     Indication: LABYRINTHITIS
     Dosage: 2 Tab, qd
  7. METICORTEN [Concomitant]
     Indication: PROPHYLAXIS
     Dosage: 1 Tab in the morning
  8. LIPITOR [Concomitant]
     Dosage: 1 Tab, qd

REACTIONS (4)
  - Retinal ischaemia [Not Recovered/Not Resolved]
  - Retinal vascular thrombosis [Not Recovered/Not Resolved]
  - Retinal infarction [Not Recovered/Not Resolved]
  - Diabetes mellitus inadequate control [Unknown]
